FAERS Safety Report 6874362-X (Version None)
Quarter: 2010Q3

REPORT INFORMATION
  Report Type: 
  Country: None (occurrence: None)
  Receive Date: 20100723
  Receipt Date: 20090629
  Transmission Date: 20110219
  Serious: No
  Sender: FDA-Public Use
  Company Number: US-PFIZER INC-2009211829

PATIENT
  Sex: Male

DRUGS (1)
  1. CHANTIX [Suspect]
     Indication: SMOKING CESSATION THERAPY
     Dates: start: 20090406

REACTIONS (3)
  - GASTROOESOPHAGEAL REFLUX DISEASE [None]
  - MIDDLE INSOMNIA [None]
  - WITHDRAWAL SYNDROME [None]
